FAERS Safety Report 10378946 (Version 2)
Quarter: 2014Q3

REPORT INFORMATION
  Report Type: Spontaneous
  Country: JP (occurrence: JP)
  Receive Date: 20140812
  Receipt Date: 20140812
  Transmission Date: 20150326
  Serious: Yes (Other)
  Sender: FDA-Public Use
  Company Number: JP-PFIZER INC-2014223340

PATIENT
  Age: 7 Decade
  Sex: Male

DRUGS (2)
  1. AMLODIN [Suspect]
     Active Substance: AMLODIPINE BESYLATE
     Indication: HYPERTENSION
     Dosage: UNK
  2. CIBENZOLINE SUCCINATE [Suspect]
     Active Substance: CIFENLINE SUCCINATE
     Dosage: UNK

REACTIONS (1)
  - Urinary retention [Unknown]
